FAERS Safety Report 16369361 (Version 1)
Quarter: 2019Q2

REPORT INFORMATION
  Report Type: Report from Study
  Country: None (occurrence: GB)
  Receive Date: 20190529
  Receipt Date: 20190529
  Transmission Date: 20190711
  Serious: Yes (Hospitalization)
  Sender: FDA-Public Use
  Company Number: GB-ABBVIE-19K-167-2797108-00

PATIENT
  Age: 50 Year
  Sex: Female
  Weight: 82.5 kg

DRUGS (3)
  1. METHOTREXATE. [Concomitant]
     Active Substance: METHOTREXATE
     Indication: PRODUCT USED FOR UNKNOWN INDICATION
     Dates: start: 20150212
  2. HUMIRA [Suspect]
     Active Substance: ADALIMUMAB
     Indication: PSORIASIS
     Route: 058
     Dates: start: 20171130
  3. FOLIC ACID. [Concomitant]
     Active Substance: FOLIC ACID
     Indication: PRODUCT USED FOR UNKNOWN INDICATION
     Dates: start: 20131016

REACTIONS (5)
  - Vaginal discharge [Recovered/Resolved]
  - Hot flush [Recovered/Resolved]
  - Menorrhagia [Recovered/Resolved]
  - Post procedural complication [Recovered/Resolved]
  - Gastrointestinal injury [Recovered/Resolved]
